FAERS Safety Report 4718821-4 (Version None)
Quarter: 2005Q3

REPORT INFORMATION
  Report Type: 
  Country: None (occurrence: None)
  Receive Date: 20050719
  Receipt Date: 20050630
  Transmission Date: 20060218
  Serious: Yes (Other)
  Sender: FDA-Public Use
  Company Number: USA0506101721

PATIENT
  Age: 50 Year
  Sex: Female

DRUGS (2)
  1. FORTEO [Suspect]
     Indication: OSTEOPOROSIS
     Dates: start: 20050424
  2. MOBIC [Concomitant]

REACTIONS (5)
  - BONE PAIN [None]
  - PAIN IN EXTREMITY [None]
  - PHOTOPSIA [None]
  - VISUAL DISTURBANCE [None]
  - VITREOUS DETACHMENT [None]
